FAERS Safety Report 7076438-3 (Version None)
Quarter: 2010Q4

REPORT INFORMATION
  Report Type: 
  Country: None (occurrence: None)
  Receive Date: 20101029
  Receipt Date: 20101029
  Transmission Date: 20110411
  Serious: Yes (Other)
  Sender: FDA-Public Use
  Company Number: None

PATIENT

DRUGS (2)
  1. DESONIDE [Suspect]
     Indication: RASH ERYTHEMATOUS
     Dosage: .05 DAILY
     Dates: start: 20070101, end: 20100101
  2. PROTOPIC [Suspect]
     Dates: start: 20090101

REACTIONS (3)
  - CAPILLARY FRAGILITY [None]
  - ERYTHEMA [None]
  - PAIN OF SKIN [None]
